FAERS Safety Report 9420203 (Version 2)
Quarter: 2013Q3

REPORT INFORMATION
  Report Type: Report from Study
  Country: ES (occurrence: ES)
  Receive Date: 20130725
  Receipt Date: 20130909
  Transmission Date: 20140515
  Serious: Yes (Death, Hospitalization)
  Sender: FDA-Public Use
  Company Number: ES-CELGENEUS-144-21660-13071593

PATIENT
  Age: 69 Year
  Sex: Female
  Weight: 88 kg

DRUGS (11)
  1. ABRAXANE [Suspect]
     Indication: PANCREATIC CARCINOMA
     Route: 041
     Dates: start: 20130529, end: 20130627
  2. GEMCITABINE [Suspect]
     Indication: PANCREATIC CARCINOMA
     Route: 041
     Dates: start: 20130529, end: 20130627
  3. RESINCALCIO [Concomitant]
     Indication: HYPERKALAEMIA
     Route: 065
     Dates: start: 20130711, end: 20130716
  4. SODIUM CHLORIDE [Concomitant]
     Indication: DEHYDRATION
     Route: 065
     Dates: start: 20130711, end: 20130716
  5. ACREL [Concomitant]
     Indication: OSTEOPOROSIS
     Dosage: .1429
     Route: 048
     Dates: start: 20130711, end: 20130716
  6. PANTOPRAZOLE [Concomitant]
     Indication: PROPHYLAXIS
     Route: 065
     Dates: start: 20130711, end: 20130716
  7. INSULATARD [Concomitant]
     Indication: DIABETES MELLITUS
     Route: 065
     Dates: start: 20130711, end: 20130716
  8. ROCALTROL [Concomitant]
     Indication: OSTEOPOROSIS
     Dosage: .2 MILLIGRAM
     Route: 065
     Dates: start: 20130711, end: 20130716
  9. FUROSEMIDE [Concomitant]
     Indication: POLYURIA
     Dosage: 40 MILLIGRAM
     Route: 065
     Dates: start: 20130711, end: 20130716
  10. SANDIMMUNE [Concomitant]
     Indication: TRANSPLANT REJECTION
     Dosage: 100 MILLIGRAM
     Route: 065
     Dates: start: 20130711, end: 20130716
  11. DUROGESIC [Concomitant]
     Indication: PAIN
     Dosage: 7 MILLIGRAM
     Route: 065
     Dates: start: 20130711, end: 20130716

REACTIONS (1)
  - Renal failure acute [Fatal]
